FAERS Safety Report 4706751-3 (Version None)
Quarter: 2005Q2

REPORT INFORMATION
  Report Type: 
  Country: None (occurrence: None)
  Receive Date: 20050629
  Receipt Date: 20050425
  Transmission Date: 20051028
  Serious: No
  Sender: FDA-Public Use
  Company Number: 05P-163-0298386-00

PATIENT
  Age: 55 Year
  Sex: Female
  Weight: 43.0917 kg

DRUGS (11)
  1. HUMIRA [Suspect]
     Indication: RHEUMATOID ARTHRITIS
     Dosage: 40 MG, 1 IN 2 WK, SUBCUTANEOUS
     Route: 058
     Dates: start: 20050101
  2. HYDROCHLOROQUINE PHOSPHATE [Concomitant]
  3. FENTANYL [Concomitant]
  4. GABAPENTIN [Concomitant]
  5. QUINAPRIL [Concomitant]
  6. PREDNISONE [Concomitant]
  7. PRAVASTATIN SODIUM [Concomitant]
  8. ZOLPIDEM TARTRATE [Concomitant]
  9. ALPRAZOLAM [Concomitant]
  10. DIAZEPAM [Concomitant]
  11. PROMETHAZINE HCL [Concomitant]

REACTIONS (1)
  - SYNCOPE [None]
